FAERS Safety Report 17206336 (Version 2)
Quarter: 2020Q2

REPORT INFORMATION
  Report Type: Spontaneous
  Country: IL (occurrence: IL)
  Receive Date: 20191227
  Receipt Date: 20200414
  Transmission Date: 20200713
  Serious: Yes (Other)
  Sender: FDA-Public Use
  Company Number: IL-TEVA-2019-IL-1159962

PATIENT
  Age: 58 Year
  Sex: Female

DRUGS (1)
  1. CINQAIR [Suspect]
     Active Substance: RESLIZUMAB
     Route: 042

REACTIONS (10)
  - Myalgia [Unknown]
  - Secretion discharge [Unknown]
  - Pyrexia [Unknown]
  - Pneumonia [Unknown]
  - Dyspnoea [Unknown]
  - Chills [Unknown]
  - Influenza [Unknown]
  - Feeling abnormal [Unknown]
  - Oral herpes [Unknown]
  - Lung infiltration [Unknown]

NARRATIVE: CASE EVENT DATE: 20191205
